FAERS Safety Report 5187411-4 (Version None)
Quarter: 2006Q4

REPORT INFORMATION
  Report Type: 
  Country: None (occurrence: None)
  Receive Date: 20061213
  Receipt Date: 20061128
  Transmission Date: 20070319
  Serious: Yes (Other)
  Sender: FDA-Public Use
  Company Number: US-2006-038192

PATIENT

DRUGS (1)
  1. MAGNEVIST [Suspect]
     Dosage: UNK, UNK, UNK

REACTIONS (1)
  - NEPHROGENIC FIBROSING DERMOPATHY [None]
